FAERS Safety Report 6677599-8 (Version None)
Quarter: 2010Q2

REPORT INFORMATION
  Report Type: 
  Country: None (occurrence: None)
  Receive Date: 20100412
  Receipt Date: 20100218
  Transmission Date: 20101027
  Serious: No
  Sender: FDA-Public Use
  Company Number: US-ALEXION-A201000195

PATIENT
  Sex: Female

DRUGS (14)
  1. SOLIRIS [Suspect]
     Indication: PAROXYSMAL NOCTURNAL HAEMOGLOBINURIA
     Dosage: 600 MG, QW
     Route: 042
     Dates: start: 20080222, end: 20080314
  2. SOLIRIS [Suspect]
     Dosage: 900 MG, Q2W
     Route: 042
     Dates: start: 20080321
  3. LISINOPRIL [Concomitant]
     Indication: BLOOD PRESSURE MANAGEMENT
     Dosage: 20/25 MG, QD
     Route: 048
  4. DILTIAZEM [Concomitant]
     Indication: BLOOD PRESSURE MANAGEMENT
     Dosage: 180/24 MG, QD
     Route: 048
  5. CENTRUM SILVER                     /01292501/ [Concomitant]
     Dosage: UNK
     Route: 048
  6. CALTRATE                           /00108001/ [Concomitant]
     Dosage: 500 MG, BID
     Route: 048
  7. VITAMIN A [Concomitant]
     Dosage: 2000 U, QD
     Route: 048
  8. PREDNISOLONE [Concomitant]
     Indication: PAROXYSMAL NOCTURNAL HAEMOGLOBINURIA
     Dosage: 2.5 MG, QD
     Route: 048
  9. FOLIC ACID [Concomitant]
     Indication: PAROXYSMAL NOCTURNAL HAEMOGLOBINURIA
     Dosage: 1 MG, QD
     Route: 048
  10. PREMARIN [Concomitant]
     Dosage: .45 MG, QD
     Route: 048
  11. POTASSIUM [Concomitant]
     Dosage: UNK
     Route: 048
  12. BONIVA [Concomitant]
     Dosage: MONTHLY
     Route: 048
  13. DARVOCET [Concomitant]
     Indication: PAIN
     Dosage: UNK
     Route: 048
  14. TYLENOL (CAPLET) [Concomitant]
     Indication: PAIN
     Dosage: UNK
     Route: 048

REACTIONS (9)
  - CHANGE OF BOWEL HABIT [None]
  - DIARRHOEA [None]
  - FEELING COLD [None]
  - GASTROINTESTINAL INFECTION [None]
  - HAEMOGLOBIN DECREASED [None]
  - HEADACHE [None]
  - MALAISE [None]
  - NAUSEA [None]
  - PAIN [None]
